FAERS Safety Report 22536871 (Version 1)
Quarter: 2023Q2

REPORT INFORMATION
  Report Type: Spontaneous
  Country: US (occurrence: None)
  Receive Date: 20230606
  Receipt Date: 20230606
  Transmission Date: 20230722
  Serious: Yes (Hospitalization)
  Sender: FDA-Public Use
  Company Number: None

PATIENT
  Age: 58 Year
  Sex: Male

DRUGS (1)
  1. VALACYCLOVIR [Suspect]
     Active Substance: VALACYCLOVIR HYDROCHLORIDE

REACTIONS (6)
  - Drug hypersensitivity [None]
  - Complication associated with device [None]
  - Catheter site swelling [None]
  - Catheter site pain [None]
  - Post procedural complication [None]
  - Removal of ambulatory peritoneal catheter [None]
